FAERS Safety Report 6715947-0 (Version None)
Quarter: 2010Q2

REPORT INFORMATION
  Report Type: 
  Country: None (occurrence: None)
  Receive Date: 20100507
  Receipt Date: 20100505
  Transmission Date: 20101027
  Serious: Yes (Death)
  Sender: FDA-Public Use
  Company Number: SK-CELGENEUS-260-50794-10050305

PATIENT
  Sex: Female

DRUGS (1)
  1. VIDAZA [Suspect]
     Route: 050

REACTIONS (1)
  - ACUTE MYELOID LEUKAEMIA [None]
